FAERS Safety Report 21555013 (Version 1)
Quarter: 2022Q4

REPORT INFORMATION
  Report Type: Spontaneous
  Country: JP (occurrence: JP)
  Receive Date: 20221104
  Receipt Date: 20221104
  Transmission Date: 20230113
  Serious: Yes (Other)
  Sender: FDA-Public Use
  Company Number: JP-PFIZER INC-PV202200094497

PATIENT
  Age: 50 Year
  Sex: Male

DRUGS (2)
  1. METHYLPREDNISOLONE [Suspect]
     Active Substance: METHYLPREDNISOLONE
     Indication: Oxygen saturation decreased
  2. REMDESIVIR [Concomitant]
     Active Substance: REMDESIVIR
     Indication: Oxygen saturation decreased

REACTIONS (2)
  - Prinzmetal angina [Unknown]
  - Phaeochromocytoma [Unknown]
